FAERS Safety Report 12896425 (Version 3)
Quarter: 2020Q1

REPORT INFORMATION
  Report Type: Spontaneous
  Country: US (occurrence: US)
  Receive Date: 20161031
  Receipt Date: 20200317
  Transmission Date: 20200409
  Serious: No
  Sender: FDA-Public Use
  Company Number: US-JAZZ-2016-US-016333

PATIENT
  Sex: Female

DRUGS (29)
  1. XYREM [Suspect]
     Active Substance: SODIUM OXYBATE
     Indication: NARCOLEPSY
     Dosage: 2.25 G, BID
     Route: 048
     Dates: start: 201601, end: 201602
  2. EPINEPHRINE HYDROCHLORIDE. [Concomitant]
     Active Substance: EPINEPHRINE HYDROCHLORIDE
  3. IRON [Concomitant]
     Active Substance: IRON
  4. XYREM [Suspect]
     Active Substance: SODIUM OXYBATE
     Dosage: 4.5 G, BID
     Route: 048
     Dates: start: 201604
  5. LINZESS [Concomitant]
     Active Substance: LINACLOTIDE
  6. ASCORBIC ACID. [Concomitant]
     Active Substance: ASCORBIC ACID
  7. VYVANSE [Concomitant]
     Active Substance: LISDEXAMFETAMINE DIMESYLATE
  8. CYMBALTA [Concomitant]
     Active Substance: DULOXETINE HYDROCHLORIDE
  9. BIOTIN [Concomitant]
     Active Substance: BIOTIN
  10. COLLAGEN [Concomitant]
     Active Substance: COLLAGEN
  11. MIRALAX [Concomitant]
     Active Substance: POLYETHYLENE GLYCOL 3350
  12. AMPICILLIN TRIHYDRATE. [Concomitant]
     Active Substance: AMPICILLIN TRIHYDRATE
  13. PROAIR HFA [Concomitant]
     Active Substance: ALBUTEROL SULFATE
  14. CALCIUM MAGNESIUM ZINC FORTE [Concomitant]
  15. DEPLIN [Concomitant]
     Active Substance: LEVOMEFOLATE CALCIUM
  16. PROBIOTICA [Concomitant]
     Active Substance: PROBIOTICS NOS
  17. SEASONIQUE [Concomitant]
     Active Substance: ETHINYL ESTRADIOL\LEVONORGESTREL
  18. NIACIN. [Concomitant]
     Active Substance: NIACIN
  19. OMEPRAZOLE. [Concomitant]
     Active Substance: OMEPRAZOLE
  20. VITAMIN B6 [Concomitant]
     Active Substance: PYRIDOXINE HYDROCHLORIDE
  21. XYREM [Suspect]
     Active Substance: SODIUM OXYBATE
     Indication: CATAPLEXY
     Dosage: DOSE ADJUSTMENTS
     Route: 048
     Dates: start: 201602, end: 201604
  22. CEFADROXIL. [Concomitant]
     Active Substance: CEFADROXIL
  23. SINGULAIR [Concomitant]
     Active Substance: MONTELUKAST SODIUM
  24. VITAMIN D3 [Concomitant]
     Active Substance: CHOLECALCIFEROL
  25. FISH OIL [Concomitant]
     Active Substance: FISH OIL
  26. LYSINE [Concomitant]
     Active Substance: LYSINE
  27. CETIRIZINE HCL [Concomitant]
     Active Substance: CETIRIZINE HYDROCHLORIDE
  28. LAMOTRIGINE. [Concomitant]
     Active Substance: LAMOTRIGINE
  29. CYANOCOBALAMIN. [Concomitant]
     Active Substance: CYANOCOBALAMIN

REACTIONS (9)
  - Feeling hot [Not Recovered/Not Resolved]
  - Gastrooesophageal reflux disease [Unknown]
  - Postural orthostatic tachycardia syndrome [Unknown]
  - Irritable bowel syndrome [Not Recovered/Not Resolved]
  - Ovarian disorder [Unknown]
  - Anxiety [Unknown]
  - Hyperhidrosis [Not Recovered/Not Resolved]
  - Insomnia [Not Recovered/Not Resolved]
  - Therapeutic response decreased [Unknown]

NARRATIVE: CASE EVENT DATE: 2016
